FAERS Safety Report 17207897 (Version 1)
Quarter: 2019Q4

REPORT INFORMATION
  Report Type: Spontaneous
  Country: FR (occurrence: FR)
  Receive Date: 20191227
  Receipt Date: 20191227
  Transmission Date: 20200122
  Serious: Yes (Hospitalization)
  Sender: FDA-Public Use
  Company Number: FR-JNJFOC-20191240779

PATIENT
  Age: 34 Year
  Sex: Male

DRUGS (2)
  1. METHADONE [Suspect]
     Active Substance: METHADONE HYDROCHLORIDE
     Indication: INTENTIONAL PRODUCT MISUSE
     Route: 065
     Dates: end: 20190820
  2. DUROGESIC [Suspect]
     Active Substance: FENTANYL
     Indication: INTENTIONAL PRODUCT MISUSE
     Route: 065
     Dates: end: 20190820

REACTIONS (4)
  - Pneumonia aspiration [Recovering/Resolving]
  - Drug abuse [Unknown]
  - Coma [Recovered/Resolved]
  - Bradypnoea [Recovered/Resolved]

NARRATIVE: CASE EVENT DATE: 201908
